FAERS Safety Report 6465259-8 (Version None)
Quarter: 2009Q4

REPORT INFORMATION
  Report Type: 
  Country: None (occurrence: None)
  Receive Date: 20091201
  Receipt Date: 20091117
  Transmission Date: 20100525
  Serious: Yes (Hospitalization, Disabling)
  Sender: FDA-Public Use
  Company Number: DE-MYLANLABS-2009S1019912

PATIENT
  Age: 56 Year
  Sex: Male

DRUGS (9)
  1. TACROLIMUS [Suspect]
     Indication: IMMUNOSUPPRESSION
     Dates: start: 20070101, end: 20070101
  2. MYCOPHENOLATE MOFETIL [Suspect]
     Indication: IMMUNOSUPPRESSION
     Dates: start: 20070101, end: 20070101
  3. MYCOPHENOLATE MOFETIL [Suspect]
     Dates: start: 20070101, end: 20070101
  4. PREDNISOLONE [Suspect]
     Indication: IMMUNOSUPPRESSION
     Dates: start: 20070101
  5. LEFLUNOMIDE [Suspect]
     Indication: IMMUNOSUPPRESSION
     Dates: start: 20070101
  6. LEFLUNOMIDE [Suspect]
     Dates: start: 20070101
  7. CYCLOSPORINE [Suspect]
     Indication: IMMUNOSUPPRESSION
     Dosage: TARGET CONCENTRATION 80 NG/L
     Dates: start: 20080401
  8. METHYLPREDNISOLONE [Suspect]
     Indication: IMMUNOSUPPRESSION
     Dosage: 500MG/DAY FOR 3 DAYS
     Dates: start: 20080401
  9. METHYLPREDNISOLONE [Suspect]
     Dosage: 250 MG/DAY FOR 5 DAYS.
     Dates: start: 20080401

REACTIONS (2)
  - DIABETES MELLITUS [None]
  - POLYOMAVIRUS-ASSOCIATED NEPHROPATHY [None]
